FAERS Safety Report 7699507-3 (Version None)
Quarter: 2011Q3

REPORT INFORMATION
  Report Type: 
  Country: None (occurrence: None)
  Receive Date: 20110820
  Receipt Date: 20110610
  Transmission Date: 20111222
  Serious: No
  Sender: FDA-Public Use
  Company Number: US-ALLERGAN-1107959US

PATIENT
  Age: 79 Year
  Sex: Female

DRUGS (2)
  1. SANCTURA XR [Suspect]
     Indication: POLLAKIURIA
     Dosage: 60 MG, QD
     Route: 048
     Dates: start: 20110527
  2. SULFAMETHOXAZOLE AND TRIMETHOPRIM [Suspect]
     Indication: CYSTITIS
     Dosage: 1 DF, BID
     Route: 048
     Dates: start: 20110127, end: 20110607

REACTIONS (2)
  - SOMNOLENCE [None]
  - RASH ERYTHEMATOUS [None]
